FAERS Safety Report 7500251-3 (Version None)
Quarter: 2011Q2

REPORT INFORMATION
  Report Type: 
  Country: None (occurrence: None)
  Receive Date: 20110524
  Receipt Date: 20100505
  Transmission Date: 20111010
  Serious: No
  Sender: FDA-Public Use
  Company Number: US-NOVEN-ALL1-2010-02664

PATIENT

DRUGS (3)
  1. DAYTRANA [Suspect]
     Dosage: 20 MG, 1X/DAY:QD
     Route: 062
     Dates: start: 20090101
  2. DAYTRANA [Suspect]
  3. MELATONIN [Concomitant]
     Dosage: UNK, 1X/DAY:QD (AT NIGHT)
     Route: 048

REACTIONS (4)
  - APPLICATION SITE ERYTHEMA [None]
  - OFF LABEL USE [None]
  - PRODUCT QUALITY ISSUE [None]
  - DRUG ADMINISTERED AT INAPPROPRIATE SITE [None]
